FAERS Safety Report 12020222 (Version 3)
Quarter: 2016Q2

REPORT INFORMATION
  Report Type: Spontaneous
  Country: JP (occurrence: JP)
  Receive Date: 20160206
  Receipt Date: 20160528
  Transmission Date: 20160815
  Serious: Yes (Death)
  Sender: FDA-Public Use
  Company Number: JP-AMGEN-JPNSP2016014221

PATIENT
  Age: 75 Year
  Sex: Male
  Weight: 47 kg

DRUGS (6)
  1. HYCAMTIN [Suspect]
     Active Substance: TOPOTECAN HYDROCHLORIDE
     Indication: SMALL CELL LUNG CANCER
     Dosage: 1.3 MG, UNK
     Route: 042
     Dates: start: 20151026, end: 20151207
  2. ORGADRONE                          /00016002/ [Concomitant]
     Indication: PROPHYLAXIS OF NAUSEA AND VOMITING
     Dosage: 1.9 MG, UNK
     Route: 042
  3. G-LASTA [Suspect]
     Active Substance: PEGFILGRASTIM
     Indication: PRODUCT USED FOR UNKNOWN INDICATION
     Dosage: 3.6 MG, SINGLE
     Route: 058
     Dates: start: 20151208, end: 20151208
  4. PREDNISOLONE. [Concomitant]
     Active Substance: PREDNISOLONE
     Dosage: UNK
     Route: 065
  5. NOGITECAN HYDROCHLORIDE [Concomitant]
     Active Substance: TOPOTECAN HYDROCHLORIDE
     Dosage: UNK
     Route: 065
  6. OMEPRAZOLE. [Concomitant]
     Active Substance: OMEPRAZOLE
     Dosage: 20 MG, BID
     Route: 042
     Dates: start: 20151214, end: 20151215

REACTIONS (1)
  - Pneumocystis jirovecii pneumonia [Fatal]

NARRATIVE: CASE EVENT DATE: 20151211
